FAERS Safety Report 7388551-1 (Version None)
Quarter: 2011Q2

REPORT INFORMATION
  Report Type: 
  Country: None (occurrence: None)
  Receive Date: 20110401
  Receipt Date: 20110322
  Transmission Date: 20111010
  Serious: Yes (Hospitalization)
  Sender: FDA-Public Use
  Company Number: JP-PFIZER INC-2011068967

PATIENT
  Age: 52 Year
  Sex: Female

DRUGS (5)
  1. ADRIACIN [Suspect]
     Indication: BREAST CANCER
     Dosage: UNK
     Route: 041
     Dates: start: 20110210, end: 20110210
  2. ENDOXAN [Concomitant]
     Indication: BREAST CANCER
     Dosage: UNK
     Route: 041
     Dates: start: 20110210, end: 20110210
  3. DECADRON [Concomitant]
     Dosage: UNK
     Route: 041
     Dates: start: 20110210
  4. EMEND [Concomitant]
     Dosage: UNK
     Dates: start: 20110210
  5. ALOXI [Concomitant]
     Dosage: UNK
     Dates: start: 20110210

REACTIONS (1)
  - PANCREATITIS ACUTE [None]
